FAERS Safety Report 15496744 (Version 2)
Quarter: 2018Q4

REPORT INFORMATION
  Report Type: Spontaneous
  Country: US (occurrence: US)
  Receive Date: 20181014
  Receipt Date: 20181213
  Transmission Date: 20190205
  Serious: Yes (Hospitalization, Other)
  Sender: FDA-Public Use
  Company Number: US-BRISTOL-MYERS SQUIBB COMPANY-BMS-2018-093277

PATIENT
  Sex: Male
  Weight: 59.4 kg

DRUGS (4)
  1. ZYPREXA [Concomitant]
     Active Substance: OLANZAPINE
     Indication: PRODUCT USED FOR UNKNOWN INDICATION
     Route: 065
  2. REGLAN [Concomitant]
     Active Substance: METOCLOPRAMIDE HYDROCHLORIDE
     Indication: PRODUCT USED FOR UNKNOWN INDICATION
     Route: 065
  3. OPDIVO [Suspect]
     Active Substance: NIVOLUMAB
     Indication: SQUAMOUS CELL CARCINOMA OF THE ORAL CAVITY
     Dosage: 480 MG, UNK, FREQUENCY : ONCE
     Route: 042
     Dates: start: 20180719, end: 20180719
  4. OPDIVO [Suspect]
     Active Substance: NIVOLUMAB
     Indication: TONGUE NEOPLASM MALIGNANT STAGE UNSPECIFIED
     Route: 065

REACTIONS (1)
  - Hospitalisation [Unknown]
